FAERS Safety Report 5479975-8 (Version None)
Quarter: 2007Q4

REPORT INFORMATION
  Report Type: 
  Country: None (occurrence: None)
  Receive Date: 20071008
  Receipt Date: 20071005
  Transmission Date: 20080405
  Serious: Yes (Hospitalization)
  Sender: FDA-Public Use
  Company Number: CH-MERCK-0710CHE00009

PATIENT
  Age: 64 Year
  Sex: Male

DRUGS (9)
  1. MODURETIC 5-50 [Suspect]
     Indication: HYPERTENSION
     Route: 048
     Dates: start: 20070101, end: 20070619
  2. ACEMETACIN [Concomitant]
     Route: 048
     Dates: end: 20070619
  3. DICLOFENAC EPOLAMINE [Concomitant]
     Route: 048
     Dates: end: 20070619
  4. PANTOPRAZOLE SODIUM [Concomitant]
     Route: 048
     Dates: end: 20070621
  5. NICOTINE [Concomitant]
     Indication: TOBACCO ABUSE
     Route: 061
  6. IBUPROFEN [Concomitant]
     Route: 048
     Dates: end: 20070616
  7. IBUPROFEN [Concomitant]
     Route: 048
     Dates: start: 20070622
  8. OXAZEPAM [Concomitant]
     Route: 048
     Dates: end: 20070619
  9. LORAZEPAM [Concomitant]
     Route: 048
     Dates: end: 20070623

REACTIONS (5)
  - ELECTROCARDIOGRAM QT PROLONGED [None]
  - HYPOKALAEMIA [None]
  - HYPONATRAEMIA [None]
  - HYPOVOLAEMIA [None]
  - SOMNOLENCE [None]
